FAERS Safety Report 19402252 (Version 1)
Quarter: 2021Q2

REPORT INFORMATION
  Report Type: Spontaneous
  Country: US (occurrence: US)
  Receive Date: 20210610
  Receipt Date: 20210610
  Transmission Date: 20210717
  Serious: No
  Sender: FDA-Public Use
  Company Number: US-COLLEGIUM PHARMACEUTICAL, INC.-2021CGM00102

PATIENT

DRUGS (1)
  1. XTAMPZA ER [Suspect]
     Active Substance: OXYCODONE
     Indication: PAIN
     Dosage: 27 MG, 2X/DAY (EVERY 12 HOURS), WITH FOOD
     Route: 048

REACTIONS (2)
  - Headache [Not Recovered/Not Resolved]
  - Product substitution issue [Not Recovered/Not Resolved]
